FAERS Safety Report 6040121-3 (Version None)
Quarter: 2009Q1

REPORT INFORMATION
  Report Type: 
  Country: None (occurrence: None)
  Receive Date: 20090116
  Receipt Date: 20080117
  Transmission Date: 20090719
  Serious: No
  Sender: FDA-Public Use
  Company Number: US-BRISTOL-MYERS SQUIBB COMPANY-14016158

PATIENT
  Age: 70 Year
  Sex: Male

DRUGS (9)
  1. ABILIFY [Suspect]
     Indication: AGITATION
     Dosage: THERAPY DURATION: ROUGHLY 3MONTHS
     Route: 048
     Dates: start: 20071019, end: 20080108
  2. ABILIFY [Suspect]
     Indication: MOOD SWINGS
     Dosage: THERAPY DURATION: ROUGHLY 3MONTHS
     Route: 048
     Dates: start: 20071019, end: 20080108
  3. PREVACID [Concomitant]
  4. FLOMAX [Concomitant]
  5. SENOKOT [Concomitant]
  6. ARICEPT [Concomitant]
  7. LORAZEPAM [Concomitant]
  8. VICODIN [Concomitant]
  9. TYLENOL (CAPLET) [Concomitant]

REACTIONS (1)
  - HYPERHIDROSIS [None]
